FAERS Safety Report 10569945 (Version 1)
Quarter: 2014Q4

REPORT INFORMATION
  Report Type: Spontaneous
  Country: US (occurrence: US)
  Receive Date: 20141107
  Receipt Date: 20141107
  Transmission Date: 20150529
  Serious: No
  Sender: FDA-Public Use
  Company Number: US-BIOGENIDEC-2014BI116592

PATIENT
  Sex: Male

DRUGS (1)
  1. TYSABRI [Suspect]
     Active Substance: NATALIZUMAB
     Indication: MULTIPLE SCLEROSIS
     Route: 042
     Dates: start: 20110324

REACTIONS (5)
  - Tremor [Recovered/Resolved]
  - Abasia [Recovered/Resolved]
  - Dyskinesia [Recovered/Resolved]
  - Mental disorder [Not Recovered/Not Resolved]
  - Muscle spasms [Recovered/Resolved]
